FAERS Safety Report 18856545 (Version 1)
Quarter: 2021Q1

REPORT INFORMATION
  Report Type: Spontaneous
  Country: DE (occurrence: DE)
  Receive Date: 20210207
  Receipt Date: 20210207
  Transmission Date: 20210420
  Serious: Yes (Hospitalization, Other)
  Sender: FDA-Public Use
  Company Number: DE-AUROBINDO-AUR-APL-2021-004728

PATIENT
  Age: 15 Year
  Sex: Female

DRUGS (4)
  1. IBUPROFEN 400 MG FILM?COATED TABLET [Suspect]
     Active Substance: IBUPROFEN
     Indication: SUICIDAL IDEATION
     Dosage: 2 DOSAGE FORM, ONCE A DAY
     Route: 048
     Dates: start: 20200202, end: 20200202
  2. RAMIPRIL COMP 5 MG/25 MG TABLETS [Suspect]
     Active Substance: HYDROCHLOROTHIAZIDE\RAMIPRIL
     Indication: SUICIDAL IDEATION
     Dosage: 10 DOSAGE FORM, ONCE A DAY
     Route: 048
     Dates: start: 20200202, end: 20200202
  3. AMOXICILLIN. [Suspect]
     Active Substance: AMOXICILLIN
     Indication: SUICIDAL IDEATION
     Dosage: UNK
     Route: 048
     Dates: start: 20200202, end: 20200202
  4. ZOPICLON 7.5 MG FILMCOATED TABLET [Suspect]
     Active Substance: ZOPICLONE
     Indication: SUICIDAL IDEATION
     Dosage: 10 DOSAGE FORM, ONCE A DAY
     Route: 048
     Dates: start: 20200202, end: 20200202

REACTIONS (5)
  - Hypotension [Unknown]
  - Intentional overdose [Unknown]
  - Disturbance in attention [Unknown]
  - Substance abuse [Unknown]
  - Toxicity to various agents [Unknown]

NARRATIVE: CASE EVENT DATE: 20200202
